FAERS Safety Report 10239352 (Version 1)
Quarter: 2014Q2

REPORT INFORMATION
  Report Type: Spontaneous
  Country: US (occurrence: None)
  Receive Date: 20140613
  Receipt Date: 20140613
  Transmission Date: 20141212
  Serious: Yes (Other)
  Sender: FDA-Public Use
  Company Number: None

PATIENT
  Age: 41 Year
  Sex: Female
  Weight: 96.62 kg

DRUGS (13)
  1. LEVOFLOXACIN 500 MG [Suspect]
     Indication: NASOPHARYNGITIS
     Dosage: 500MG?7 TAB ?1 TABLET EVERYDAY?BY MOUTH
     Route: 048
     Dates: start: 20140528
  2. LEVOFLOXACIN 500 MG [Suspect]
     Indication: PRODUCT USED FOR UNKNOWN INDICATION
     Dosage: 500MG?7 TAB ?1 TABLET EVERYDAY?BY MOUTH
     Route: 048
     Dates: start: 20140528
  3. OMEPRAZOLE [Concomitant]
  4. BACIOFEN [Concomitant]
  5. BUSPIRONE [Concomitant]
  6. ASPIRIN [Concomitant]
  7. ATORVASTATIN [Concomitant]
  8. HYDROCODONE/APAP [Concomitant]
  9. BENICAR [Concomitant]
  10. TRAMADOL HCL [Concomitant]
  11. ALBUTEROL (AL-BYOO-TER-OLC) [Concomitant]
  12. IPRATROPIUM [Concomitant]
  13. DIPHENHYDRAMINE HCI [Concomitant]

REACTIONS (6)
  - Urticaria [None]
  - Dizziness [None]
  - Vision blurred [None]
  - Pruritus [None]
  - Confusional state [None]
  - Nervousness [None]
